FAERS Safety Report 25311820 (Version 1)
Quarter: 2025Q2

REPORT INFORMATION
  Report Type: Spontaneous
  Country: CN (occurrence: CN)
  Receive Date: 20250514
  Receipt Date: 20250514
  Transmission Date: 20250717
  Serious: Yes (Hospitalization)
  Sender: GLAXOSMITHKLINE
  Company Number: CN-GSK-CN2025APC052824

PATIENT

DRUGS (1)
  1. MEPOLIZUMAB [Suspect]
     Active Substance: MEPOLIZUMAB
     Indication: Eosinophilia
     Route: 058
     Dates: start: 20250311, end: 20250311

REACTIONS (4)
  - Headache [Recovering/Resolving]
  - Herpes zoster [Recovering/Resolving]
  - Post herpetic neuralgia [Recovered/Resolved with Sequelae]
  - Facial nerve neuritis [Recovered/Resolved with Sequelae]

NARRATIVE: CASE EVENT DATE: 20250313
